FAERS Safety Report 16526692 (Version 4)
Quarter: 2019Q3

REPORT INFORMATION
  Report Type: Spontaneous
  Country: IT (occurrence: IT)
  Receive Date: 20190704
  Receipt Date: 20190918
  Transmission Date: 20191004
  Serious: Yes (Life-Threatening, Hospitalization, Other)
  Sender: FDA-Public Use
  Company Number: PHHY2019IT134676

PATIENT
  Age: 79 Year
  Sex: Male

DRUGS (7)
  1. SIMVASTATIN. [Interacting]
     Active Substance: SIMVASTATIN
     Indication: PRODUCT USED FOR UNKNOWN INDICATION
     Dosage: UNK
     Route: 048
  2. PREDNISONE. [Suspect]
     Active Substance: PREDNISONE
     Indication: HORMONE-REFRACTORY PROSTATE CANCER
     Dosage: 10 MG, QD
     Route: 065
  3. ABIRATERONE ACETATE. [Interacting]
     Active Substance: ABIRATERONE ACETATE
     Indication: HORMONE-REFRACTORY PROSTATE CANCER
     Dosage: UNK
     Route: 048
  4. NOVONORM [Suspect]
     Active Substance: REPAGLINIDE
     Indication: TYPE 2 DIABETES MELLITUS
     Dosage: 4 MG, QD
     Route: 065
  5. PREDNISONE. [Interacting]
     Active Substance: PREDNISONE
     Indication: ADRENOCORTICAL STEROID THERAPY
     Dosage: UNK
     Route: 065
  6. ABIRATERONE ACETATE. [Interacting]
     Active Substance: ABIRATERONE ACETATE
     Indication: METASTASES TO PROSTATE
  7. NOVONORM [Suspect]
     Active Substance: REPAGLINIDE
     Dosage: 2 MG, UNK
     Route: 065

REACTIONS (4)
  - Product use in unapproved indication [Unknown]
  - Drug level increased [Unknown]
  - Drug interaction [Recovered/Resolved]
  - Hypoglycaemia [Recovered/Resolved]

NARRATIVE: CASE EVENT DATE: 20121021
